FAERS Safety Report 9701587 (Version 2)
Quarter: 2013Q4

REPORT INFORMATION
  Report Type: Spontaneous
  Country: US (occurrence: US)
  Receive Date: 20131119
  Receipt Date: 20131119
  Transmission Date: 20140711
  Serious: No
  Sender: FDA-Public Use
  Company Number: US-ORACLE-2011S1000078

PATIENT
  Age: 34 Year
  Sex: Male
  Weight: 67.13 kg

DRUGS (14)
  1. KRYSTEXXA INJECTION [Suspect]
     Indication: GOUTY TOPHUS
     Route: 042
     Dates: start: 20110915, end: 20110915
  2. KRYSTEXXA INJECTION [Suspect]
     Indication: GOUTY TOPHUS
     Route: 042
     Dates: start: 20110830, end: 20110830
  3. KRYSTEXXA INJECTION [Suspect]
     Indication: GOUTY TOPHUS
     Route: 042
     Dates: start: 20110815, end: 20110815
  4. BENADRYL /00945501/ [Concomitant]
     Indication: PREMEDICATION
     Route: 042
     Dates: start: 20110915, end: 20110915
  5. BENADRYL /00945501/ [Concomitant]
     Indication: PREMEDICATION
     Route: 042
     Dates: start: 20110830, end: 20110830
  6. BENADRYL /00945501/ [Concomitant]
     Indication: PREMEDICATION
     Route: 042
     Dates: start: 20110815, end: 20110815
  7. SOLU-CORTEF [Concomitant]
     Indication: PREMEDICATION
     Route: 042
     Dates: start: 20110915, end: 20110915
  8. SOLU-CORTEF [Concomitant]
     Indication: PREMEDICATION
     Route: 042
     Dates: start: 20110830, end: 20110830
  9. SOLU-CORTEF [Concomitant]
     Indication: PREMEDICATION
     Route: 042
     Dates: start: 20110815, end: 20110815
  10. ULORIC [Concomitant]
     Indication: GOUT
  11. COLCHICINE [Concomitant]
     Indication: GOUT
  12. PREDNISONE [Concomitant]
     Indication: PRODUCT USED FOR UNKNOWN INDICATION
  13. NAPROXEN [Concomitant]
     Indication: PRODUCT USED FOR UNKNOWN INDICATION
  14. OMEPRAZOLE [Concomitant]
     Indication: PRODUCT USED FOR UNKNOWN INDICATION

REACTIONS (1)
  - Therapeutic response decreased [Unknown]
